FAERS Safety Report 17128210 (Version 1)
Quarter: 2019Q4

REPORT INFORMATION
  Report Type: Spontaneous
  Country: US (occurrence: US)
  Receive Date: 20191209
  Receipt Date: 20191209
  Transmission Date: 20200122
  Serious: No
  Sender: FDA-Public Use
  Company Number: US-UCBSA-2017002433

PATIENT
  Age: 57 Year
  Sex: Male

DRUGS (6)
  1. LEVETIRACETAM. [Suspect]
     Active Substance: LEVETIRACETAM
     Indication: DYSTONIA
     Dosage: UNKNOWN DOSE
  2. METHYLPREDNISOLONE SODIUM SUCCINATE. [Concomitant]
     Active Substance: METHYLPREDNISOLONE SODIUM SUCCINATE
     Indication: DYSTONIA
     Dosage: 1000 MG/DAY
  3. IMMUNOGLOBULIN [Concomitant]
     Indication: DYSTONIA
     Dosage: 0.4 G/KG/DAY
     Route: 042
  4. RITUXIMAB. [Concomitant]
     Active Substance: RITUXIMAB
     Indication: DYSTONIA
     Dosage: 1000 MG, 1 INJECTION
  5. LEVETIRACETAM. [Suspect]
     Active Substance: LEVETIRACETAM
     Indication: OFF LABEL USE
  6. GABAPENTIN. [Concomitant]
     Active Substance: GABAPENTIN
     Indication: DYSTONIA
     Dosage: UNKNOWN DOSE

REACTIONS (1)
  - No adverse event [Unknown]
